FAERS Safety Report 22606797 (Version 3)
Quarter: 2024Q2

REPORT INFORMATION
  Report Type: Spontaneous
  Country: CA (occurrence: CA)
  Receive Date: 20230615
  Receipt Date: 20240607
  Transmission Date: 20240716
  Serious: Yes (Other)
  Sender: FDA-Public Use
  Company Number: CA-PFIZER INC-202300194281

PATIENT
  Age: 56 Year
  Sex: Male

DRUGS (4)
  1. XELJANZ [Suspect]
     Active Substance: TOFACITINIB CITRATE
     Indication: Colitis ulcerative
     Dosage: 10 MG, 2X/DAY
     Route: 048
     Dates: start: 20230404, end: 202304
  2. XELJANZ [Suspect]
     Active Substance: TOFACITINIB CITRATE
     Dosage: 5 MG, 2X/DAY
     Route: 048
     Dates: start: 20230427, end: 20230526
  3. PREDNISONE [Concomitant]
     Active Substance: PREDNISONE
     Dosage: UNK
  4. SULFASALAZINE [Concomitant]
     Active Substance: SULFASALAZINE
     Dosage: UNK

REACTIONS (5)
  - Myocardial infarction [Not Recovered/Not Resolved]
  - Back pain [Not Recovered/Not Resolved]
  - Chest pain [Recovering/Resolving]
  - Product dispensing error [Unknown]
  - Product use issue [Unknown]

NARRATIVE: CASE EVENT DATE: 20230101
